FAERS Safety Report 9879846 (Version 1)
Quarter: 2014Q1

REPORT INFORMATION
  Report Type: Spontaneous
  Country: JP (occurrence: JP)
  Receive Date: 20140206
  Receipt Date: 20140206
  Transmission Date: 20141002
  Serious: Yes (Other)
  Sender: FDA-Public Use
  Company Number: JP-MYLANLABS-2014S1001990

PATIENT
  Sex: Female

DRUGS (2)
  1. CARBOPLATIN [Suspect]
     Indication: OVARIAN CANCER
     Dosage: CYCLIC
     Route: 041
     Dates: start: 20140123, end: 20140123
  2. PACLITAXEL [Concomitant]
     Indication: OVARIAN CANCER
     Route: 041
     Dates: start: 20140123, end: 20140123

REACTIONS (3)
  - Flushing [Recovered/Resolved]
  - Pruritus [Recovered/Resolved]
  - Blister [Recovered/Resolved]
